FAERS Safety Report 5900011-0 (Version None)
Quarter: 2008Q3

REPORT INFORMATION
  Report Type: 
  Country: None (occurrence: None)
  Receive Date: 20080925
  Receipt Date: 20080925
  Transmission Date: 20090109
  Serious: No
  Sender: FDA-Public Use
  Company Number: None

PATIENT
  Age: 64 Year
  Sex: Female
  Weight: 58.9676 kg

DRUGS (1)
  1. TEKTURNA [Suspect]
     Indication: ESSENTIAL HYPERTENSION
     Dosage: 150 MG IQD PO
     Route: 048
     Dates: start: 20071001, end: 20080801

REACTIONS (3)
  - BLOOD PRESSURE INADEQUATELY CONTROLLED [None]
  - HEADACHE [None]
  - TREATMENT FAILURE [None]
